FAERS Safety Report 22246957 (Version 2)
Quarter: 2023Q2

REPORT INFORMATION
  Report Type: Spontaneous
  Country: JP (occurrence: JP)
  Receive Date: 20230424
  Receipt Date: 20230504
  Transmission Date: 20230722
  Serious: Yes (Other)
  Sender: FDA-Public Use
  Company Number: JP-TEVA-2023-JP-2879763

PATIENT
  Age: 5 Decade
  Sex: Female

DRUGS (1)
  1. AJOVY [Suspect]
     Active Substance: FREMANEZUMAB-VFRM
     Indication: Migraine
     Dosage: UNK, 5 DOSES
     Route: 065
     Dates: start: 202206

REACTIONS (4)
  - Urinary bladder suspension [Unknown]
  - Breast cancer [Unknown]
  - Therapy cessation [Unknown]
  - Therapeutic product effect incomplete [Unknown]
